FAERS Safety Report 5961331-7 (Version None)
Quarter: 2008Q4

REPORT INFORMATION
  Report Type: 
  Country: None (occurrence: None)
  Receive Date: 20081119
  Receipt Date: 20080123
  Transmission Date: 20090506
  Serious: No
  Sender: FDA-Public Use
  Company Number: 2008S1001202

PATIENT
  Age: 55 Year
  Sex: Male

DRUGS (6)
  1. BUSULFAN [Suspect]
     Dosage: 0.75 MG/KG;Q6H
  2. CYCLOPHOSPHAMIDE [Suspect]
     Dosage: 60 MG/KG;DAILY/6000 MG/M2
  3. VINCRISTINE [Concomitant]
  4. DOXORUBICIN HCL [Concomitant]
  5. DEXAMETHASONE 0.5MG TAB [Concomitant]
  6. ETOPOSIDE [Suspect]
     Dosage: 10 MG/KG;DAILY

REACTIONS (1)
  - ALOPECIA [None]
